FAERS Safety Report 13528038 (Version 1)
Quarter: 2017Q2

REPORT INFORMATION
  Report Type: Spontaneous
  Country: US (occurrence: US)
  Receive Date: 20170509
  Receipt Date: 20170509
  Transmission Date: 20170830
  Serious: Yes (Hospitalization)
  Sender: FDA-Public Use
  Company Number: US-INGENUS PHARMACEUTICALS NJ, LLC-ING201705-000229

PATIENT
  Age: 69 Year
  Sex: Male

DRUGS (1)
  1. PROBENECID AND COLCHICINE [Suspect]
     Active Substance: COLCHICINE\PROBENECID
     Indication: GOUT

REACTIONS (3)
  - Mental status changes [Unknown]
  - Aplasia pure red cell [Unknown]
  - Anaemia [Recovered/Resolved]
